FAERS Safety Report 26073990 (Version 1)
Quarter: 2025Q4

REPORT INFORMATION
  Report Type: Report from Study
  Country: US (occurrence: US)
  Receive Date: 20251121
  Receipt Date: 20251121
  Transmission Date: 20260117
  Serious: Yes (Hospitalization)
  Sender: ABBVIE
  Company Number: US-ABBVIE-6500381

PATIENT
  Age: 32 Year
  Sex: Male

DRUGS (2)
  1. RINVOQ [Suspect]
     Active Substance: UPADACITINIB
     Indication: Colitis ulcerative
     Dosage: STOP DATE 2025 FOR 8 WEEKS
     Route: 048
     Dates: start: 20250813
  2. RINVOQ [Suspect]
     Active Substance: UPADACITINIB
     Indication: Colitis ulcerative
     Dosage: FORM STRENGTH 30MG
     Route: 048
     Dates: start: 2025, end: 20251104

REACTIONS (2)
  - Frequent bowel movements [Recovering/Resolving]
  - Gastrointestinal viral infection [Unknown]

NARRATIVE: CASE EVENT DATE: 20250101
